FAERS Safety Report 7771182-9 (Version None)
Quarter: 2011Q3

REPORT INFORMATION
  Report Type: 
  Country: None (occurrence: None)
  Receive Date: 20110922
  Receipt Date: 20110705
  Transmission Date: 20111222
  Serious: No
  Sender: FDA-Public Use
  Company Number: US-ASTRAZENECA-2011SE40238

PATIENT
  Age: 60 Year
  Sex: Female

DRUGS (3)
  1. SEROQUEL [Suspect]
     Indication: MANIA
     Route: 048
  2. NEXIUM [Suspect]
     Indication: GASTROOESOPHAGEAL REFLUX DISEASE
     Route: 048
  3. CRESTOR [Suspect]
     Indication: BLOOD CHOLESTEROL INCREASED
     Route: 048

REACTIONS (4)
  - DRUG DOSE OMISSION [None]
  - APHAGIA [None]
  - HEADACHE [None]
  - CRYING [None]
